FAERS Safety Report 6347576-5 (Version None)
Quarter: 2009Q3

REPORT INFORMATION
  Report Type: 
  Country: None (occurrence: None)
  Receive Date: 20090909
  Receipt Date: 20090909
  Transmission Date: 20100115
  Serious: No
  Sender: FDA-Public Use
  Company Number: None

PATIENT
  Age: 85 Year
  Sex: Male

DRUGS (1)
  1. CIPRO [Suspect]
     Indication: CELLULITIS
     Dosage: 400 MGIV
     Route: 042
     Dates: start: 20090902, end: 20090903

REACTIONS (2)
  - BLISTER [None]
  - ERYTHEMA [None]
